FAERS Safety Report 4604597-8 (Version None)
Quarter: 2005Q1

REPORT INFORMATION
  Report Type: 
  Country: None (occurrence: None)
  Receive Date: 20050310
  Receipt Date: 20050201
  Transmission Date: 20050727
  Serious: Yes (Other)
  Sender: FDA-Public Use
  Company Number: NL-MERCK-0502NLD00009

PATIENT
  Age: 51 Year
  Sex: Female

DRUGS (3)
  1. VIOXX [Suspect]
     Route: 048
     Dates: start: 20020101
  2. ETHINYL ESTRADIOL AND NORGESTREL [Concomitant]
     Route: 065
     Dates: end: 20000101
  3. DICLOFENAC SODIUM AND MISOPROSTOL [Concomitant]
     Route: 065
     Dates: end: 20000101

REACTIONS (1)
  - CEREBROVASCULAR ACCIDENT [None]
